FAERS Safety Report 5602686-2 (Version None)
Quarter: 2008Q1

REPORT INFORMATION
  Report Type: 
  Country: None (occurrence: None)
  Receive Date: 20080125
  Receipt Date: 20080124
  Transmission Date: 20080703
  Serious: Yes (Hospitalization)
  Sender: FDA-Public Use
  Company Number: GB-ASTRAZENECA-2004AP01124

PATIENT
  Age: 48 Year
  Sex: Female

DRUGS (10)
  1. LISINOPRIL [Suspect]
     Indication: HYPERTENSION
  2. OMEPRAZOLE [Concomitant]
  3. BISOPROLOL FUMARATE [Concomitant]
  4. ALBUTEROL [Concomitant]
     Indication: ASTHMA
  5. FEXOFENADINE [Concomitant]
  6. LOFEPROMINE [Concomitant]
  7. PREMARIN [Concomitant]
  8. PENICILLIN [Concomitant]
  9. ASPIRIN [Concomitant]
  10. SODIUM VALPORATE [Concomitant]

REACTIONS (4)
  - AGITATION [None]
  - ANGIOEDEMA [None]
  - ANXIETY [None]
  - DYSPNOEA [None]
